FAERS Safety Report 7972114-0 (Version None)
Quarter: 2011Q4

REPORT INFORMATION
  Report Type: 
  Country: None (occurrence: None)
  Receive Date: 20111212
  Receipt Date: 20111206
  Transmission Date: 20120403
  Serious: Yes (Disabling)
  Sender: FDA-Public Use
  Company Number: US-GILEAD-2011-0047817

PATIENT
  Age: 72 Year
  Sex: Female

DRUGS (3)
  1. TOBRAMYCIN                         /00304202/ [Concomitant]
  2. LETAIRIS [Suspect]
     Indication: PRODUCT USED FOR UNKNOWN INDICATION
     Dosage: 5 MG, UNK
     Route: 048
     Dates: start: 20111119, end: 20111128
  3. NIFEDIPINE [Suspect]

REACTIONS (5)
  - DRUG INEFFECTIVE [None]
  - MALAISE [None]
  - DYSPNOEA [None]
  - HYPOTENSION [None]
  - OXYGEN SATURATION DECREASED [None]
